FAERS Safety Report 8471290-3 (Version None)
Quarter: 2012Q2

REPORT INFORMATION
  Report Type: 
  Country: None (occurrence: None)
  Receive Date: 20120323
  Receipt Date: 20111111
  Transmission Date: 20120825
  Serious: Yes (Hospitalization, Other)
  Sender: FDA-Public Use
  Company Number: 163-21880-11110837

PATIENT
  Age: 76 Year
  Sex: Male

DRUGS (3)
  1. VITAMIN D3 (COLECALCIFEROL) (UNKNOWN) [Concomitant]
  2. METOPROLOL TARTRATE [Concomitant]
  3. REVLIMID [Suspect]
     Indication: MULTIPLE MYELOMA
     Dosage: 25 MG, DAILY X 21 DAYS, PO
     Route: 048
     Dates: start: 20111014, end: 20110101

REACTIONS (4)
  - FALL [None]
  - LACERATION [None]
  - CONTUSION [None]
  - LOSS OF CONSCIOUSNESS [None]
